FAERS Safety Report 6240696-5 (Version None)
Quarter: 2009Q2

REPORT INFORMATION
  Report Type: 
  Country: None (occurrence: None)
  Receive Date: 20090623
  Receipt Date: 20090129
  Transmission Date: 20091009
  Serious: No
  Sender: FDA-Public Use
  Company Number: US-ASTRAZENECA-2009UW02622

PATIENT
  Age: 69 Year
  Sex: Male

DRUGS (2)
  1. PULMICORT RESPULES [Suspect]
     Route: 055
  2. ALBUTEROL [Concomitant]
     Route: 055

REACTIONS (1)
  - OROPHARYNGEAL PAIN [None]
